FAERS Safety Report 6313011-6 (Version None)
Quarter: 2009Q3

REPORT INFORMATION
  Report Type: 
  Country: None (occurrence: None)
  Receive Date: 20090818
  Receipt Date: 20090805
  Transmission Date: 20100115
  Serious: Yes (Hospitalization, Other)
  Sender: FDA-Public Use
  Company Number: PHHY2009JP29720

PATIENT
  Sex: Female

DRUGS (13)
  1. LAMISIL [Suspect]
     Dosage: 125 MG DAILY
     Route: 048
     Dates: start: 20090528
  2. LAMISIL [Suspect]
     Dosage: 125 MG DAILY
     Route: 048
     Dates: end: 20090712
  3. PROMAC [Concomitant]
     Indication: GASTRIC ULCER
     Dosage: 75 MG, UNK
     Route: 048
  4. PROMAC [Concomitant]
     Dosage: 150 MG, UNK
  5. GLYCYRON [Concomitant]
     Indication: STOMATITIS
     Dosage: 4 DF, UNK
     Route: 048
  6. GLYCYRON [Concomitant]
     Dosage: 100 MG, UNK
     Route: 048
  7. NU-LOTAN [Concomitant]
     Indication: HYPERTENSION
     Dosage: 50 MG, UNK
     Route: 048
  8. PARIET [Concomitant]
     Indication: REFLUX OESOPHAGITIS
     Dosage: 10 MG, UNK
     Route: 048
     Dates: start: 20080121
  9. COLDRIN [Concomitant]
     Indication: BRONCHITIS CHRONIC
     Dosage: 25 MG, UNK
     Route: 048
  10. LAC B [Concomitant]
     Indication: DIARRHOEA
     Dosage: 3 G, UNK
     Route: 048
  11. ANTEBATE [Concomitant]
     Route: 061
  12. DIHYDROCODEINE BITARTRATE INJ [Concomitant]
     Indication: BRONCHITIS CHRONIC
  13. EPHEDRIN [Concomitant]
     Indication: BRONCHITIS CHRONIC
     Route: 048

REACTIONS (9)
  - ALANINE AMINOTRANSFERASE INCREASED [None]
  - ASPARTATE AMINOTRANSFERASE INCREASED [None]
  - BLOOD ALKALINE PHOSPHATASE INCREASED [None]
  - GAMMA-GLUTAMYLTRANSFERASE INCREASED [None]
  - HAEMATURIA [None]
  - LIVER DISORDER [None]
  - MYALGIA [None]
  - NEPHRITIS [None]
  - PYREXIA [None]
